FAERS Safety Report 5572498-7 (Version None)
Quarter: 2007Q4

REPORT INFORMATION
  Report Type: 
  Country: None (occurrence: None)
  Receive Date: 20071219
  Receipt Date: 20071207
  Transmission Date: 20080405
  Serious: Yes (Hospitalization)
  Sender: FDA-Public Use
  Company Number: GXKR2007NO10604

PATIENT
  Age: 75 Year
  Sex: Female
  Weight: 55 kg

DRUGS (7)
  1. SIMVASTATIN [Suspect]
     Indication: CORONARY ARTERY DISEASE
     Dosage: ORAL
     Route: 048
  2. CARDIZEM [Suspect]
     Indication: ANGINA PECTORIS
     Dosage: ORAL
     Route: 048
  3. ISOSORBIDE MONONITRATE [Suspect]
     Indication: ANGINA PECTORIS
     Dosage: ORAL
     Route: 048
  4. ALBYL-E (ACETYLSALICYLIC ACID, MAGNESIUM OXIDE) [Concomitant]
  5. COSOPT [Concomitant]
  6. RANITIDINE [Concomitant]
  7. XALATAN [Concomitant]

REACTIONS (2)
  - DRUG INTERACTION [None]
  - RHABDOMYOLYSIS [None]
